FAERS Safety Report 8170686-7 (Version None)
Quarter: 2012Q1

REPORT INFORMATION
  Report Type: 
  Country: None (occurrence: None)
  Receive Date: 20120228
  Receipt Date: 20120227
  Transmission Date: 20120608
  Serious: Yes (Hospitalization)
  Sender: FDA-Public Use
  Company Number: IT-PFIZER INC-2012042663

PATIENT
  Age: 36 Year
  Sex: Female

DRUGS (1)
  1. SOLU-MEDROL [Suspect]
     Indication: FORMICATION
     Dosage: 1 G, UNK
     Route: 042

REACTIONS (1)
  - CEREBROVASCULAR ACCIDENT [None]
